FAERS Safety Report 21740948 (Version 1)
Quarter: 2022Q4

REPORT INFORMATION
  Report Type: Report from Study
  Country: US (occurrence: US)
  Receive Date: 20221216
  Receipt Date: 20221216
  Transmission Date: 20230113
  Serious: Yes (Hospitalization)
  Sender: FDA-Public Use
  Company Number: US-GILEAD-2022-0601214

PATIENT
  Age: 41 Year
  Sex: Female

DRUGS (2)
  1. AMBRISENTAN [Suspect]
     Active Substance: AMBRISENTAN
     Indication: Pulmonary hypertension
     Dosage: 10 MG, QD
     Route: 065
     Dates: start: 20220823
  2. ALYQ [Concomitant]
     Active Substance: TADALAFIL

REACTIONS (3)
  - Oedema [Unknown]
  - Blood potassium [Unknown]
  - Malaise [Unknown]

NARRATIVE: CASE EVENT DATE: 20221006
